FAERS Safety Report 6494156-7 (Version None)
Quarter: 2009Q4

REPORT INFORMATION
  Report Type: 
  Country: None (occurrence: None)
  Receive Date: 20091214
  Receipt Date: 20090113
  Transmission Date: 20100525
  Serious: No
  Sender: FDA-Public Use
  Company Number: US-BRISTOL-MYERS SQUIBB COMPANY-14468490

PATIENT
  Age: 14 Year
  Sex: Male
  Weight: 73 kg

DRUGS (3)
  1. ABILIFY [Suspect]
     Indication: BIPOLAR DISORDER
     Dosage: BEGAN TO REDUCE 2 WEEKS AGO
  2. LAMICTAL [Concomitant]
  3. AMANTADINE [Concomitant]

REACTIONS (1)
  - DYSTONIA [None]
